FAERS Safety Report 23921326 (Version 4)
Quarter: 2024Q3

REPORT INFORMATION
  Report Type: Report from Study
  Country: FR (occurrence: FR)
  Receive Date: 20240530
  Receipt Date: 20240723
  Transmission Date: 20241017
  Serious: Yes (Hospitalization)
  Sender: ABBVIE
  Company Number: FR-ABBVIE-5737160

PATIENT
  Age: 77 Year
  Sex: Female

DRUGS (6)
  1. CARBIDOPA\LEVODOPA [Suspect]
     Active Substance: CARBIDOPA\LEVODOPA
     Indication: Parkinson^s disease
     Route: 050
     Dates: start: 20190913, end: 20240423
  2. CARBIDOPA\LEVODOPA [Suspect]
     Active Substance: CARBIDOPA\LEVODOPA
     Dosage: CONTINUOUS FLOW RATE- 6.30 AM TO 12 PM- 3.6ML/H AND 12 PM TO 6PM- 3.5 ML/H
     Route: 050
     Dates: start: 20240423, end: 202405
  3. CARBIDOPA\LEVODOPA [Suspect]
     Active Substance: CARBIDOPA\LEVODOPA
     Dosage: 3.7 ML/H FROM 7 AM TO 12 PM AND 3.4 ML/H FROM 12 PM TO 6 PM
     Route: 050
     Dates: start: 202405, end: 202406
  4. CARBIDOPA\LEVODOPA [Suspect]
     Active Substance: CARBIDOPA\LEVODOPA
     Dosage: MORNING DOSE 10 ML, CONTINUOUS FLOW RATE 4 ML/H FROM 6.30AM TO 12PM: 3.4 ML/H FROM 12PM TO 6.30PM
     Route: 050
     Dates: start: 202406, end: 20240716
  5. CARBIDOPA\LEVODOPA [Suspect]
     Active Substance: CARBIDOPA\LEVODOPA
     Dosage: MORNING DOSE 10 ML, CONTINUOUS FLOW RATE 4 ML/H FROM 6.30AM TO 12PM: 3.4 ML/H FROM 12PM TO 6.30PM
     Route: 050
     Dates: start: 202406, end: 202406
  6. CARBIDOPA\LEVODOPA [Suspect]
     Active Substance: CARBIDOPA\LEVODOPA
     Dosage: CONTINUOUS FLOW RATE 3 ML/H FROM 12 P.M
     Route: 050
     Dates: start: 20240716

REACTIONS (5)
  - General physical health deterioration [Not Recovered/Not Resolved]
  - Dyskinesia [Not Recovered/Not Resolved]
  - Weight decreased [Unknown]
  - General physical health deterioration [Recovered/Resolved]
  - Device delivery system issue [Unknown]

NARRATIVE: CASE EVENT DATE: 20240401
